FAERS Safety Report 4700316-5 (Version None)
Quarter: 2005Q2

REPORT INFORMATION
  Report Type: 
  Country: None (occurrence: None)
  Receive Date: 20050209
  Receipt Date: 20050209
  Transmission Date: 20051028
  Serious: Yes (Other)
  Sender: FDA-Public Use
  Company Number: None

PATIENT
  Sex: Female
  Weight: 62.1428 kg

DRUGS (1)
  1. NITRO PATCH (GENERIC) 0.2MG [Suspect]
     Indication: CHEST PAIN
     Dosage: QD

REACTIONS (1)
  - RASH [None]
